FAERS Safety Report 11579311 (Version 1)
Quarter: 2015Q3

REPORT INFORMATION
  Report Type: Spontaneous
  Country: BR (occurrence: BR)
  Receive Date: 20150930
  Receipt Date: 20150930
  Transmission Date: 20151125
  Serious: Yes (Hospitalization, Other)
  Sender: FDA-Public Use
  Company Number: BR-ABBVIE-15P-020-1473151-00

PATIENT
  Sex: Male
  Weight: 70 kg

DRUGS (9)
  1. TRILEPTAL [Concomitant]
     Active Substance: OXCARBAZEPINE
     Dosage: 3 TABLETS (7 AM, 2PM AND 9PM); DAILY DOSE: 2700MG
     Route: 048
     Dates: start: 2004
  2. DEPAKOTE [Suspect]
     Active Substance: DIVALPROEX SODIUM
     Indication: EPILEPSY
     Route: 065
     Dates: start: 2002, end: 2002
  3. DEPAKENE [Suspect]
     Active Substance: VALPROIC ACID
     Dosage: IN THE MORNING AND AT NIGHT; DAILY DOSE: 1000MG
     Route: 048
     Dates: end: 2003
  4. DEPAKENE [Suspect]
     Active Substance: VALPROIC ACID
     Indication: EPILEPSY
     Route: 065
  5. TRILEPTAL [Concomitant]
     Active Substance: OXCARBAZEPINE
     Indication: EPILEPSY
     Dosage: MORNING, AFTERNOON AND NIGHT; DAILY DOSE: 900MG
     Route: 048
  6. SABRIL [Concomitant]
     Active Substance: VIGABATRIN
     Indication: EPILEPSY
     Dosage: DAILY DOSE: 1000 MILLIGRAM, LATE AFTERNOON. DISCONTINUED AFTER SURGERY.
     Route: 048
     Dates: end: 2003
  7. DEPAKENE [Suspect]
     Active Substance: VALPROIC ACID
     Dosage: UNIT DOSE: 1000MG IN MORNING AND 500MG AT AFTERNOON AND AT NIGHT; 2000MG
     Route: 048
     Dates: start: 2003
  8. DEPAKENE [Suspect]
     Active Substance: VALPROIC ACID
     Dosage: 2 TABS (1000MG) IN THE MORNING, 1.5 TAB (750MG)IN THE AFTERNOON AND AT NIGHT; 2500MG
     Route: 048
  9. TRILEPTAL [Concomitant]
     Active Substance: OXCARBAZEPINE
     Dosage: DOSE INCREASED UP TO 12 TABLETS
     Route: 065

REACTIONS (7)
  - Wrong technique in product usage process [Unknown]
  - Seizure [Recovered/Resolved]
  - Lung disorder [Recovered/Resolved]
  - Seizure [Not Recovered/Not Resolved]
  - Infection [Recovered/Resolved]
  - Erythema [Recovered/Resolved]
  - Infection [Unknown]

NARRATIVE: CASE EVENT DATE: 2002
